FAERS Safety Report 8099267-0 (Version None)
Quarter: 2012Q1

REPORT INFORMATION
  Report Type: 
  Country: None (occurrence: None)
  Receive Date: 20120129
  Receipt Date: 20111026
  Transmission Date: 20120608
  Serious: No
  Sender: FDA-Public Use
  Company Number: US-ABBOTT-11P-163-0869366-00

PATIENT
  Sex: Female
  Weight: 79.45 kg

DRUGS (6)
  1. HUMIRA [Suspect]
     Indication: CROHN'S DISEASE
     Route: 058
     Dates: start: 20031001
  2. HUMIRA [Suspect]
     Indication: RHEUMATOID ARTHRITIS
  3. CYMBALTA [Concomitant]
     Indication: DEPRESSION
  4. ACYCLOVIR [Concomitant]
     Indication: HERPES VIRUS INFECTION
  5. PHENERGAN [Concomitant]
     Indication: CROHN'S DISEASE
  6. SOMA [Concomitant]
     Indication: FIBROMYALGIA

REACTIONS (4)
  - KIDNEY INFECTION [None]
  - BACK PAIN [None]
  - CYSTITIS [None]
  - POLLAKIURIA [None]
